FAERS Safety Report 5313578-0 (Version None)
Quarter: 2007Q2

REPORT INFORMATION
  Report Type: 
  Country: None (occurrence: None)
  Receive Date: 20070425
  Receipt Date: 20070416
  Transmission Date: 20071010
  Serious: Yes (Life-Threatening)
  Sender: FDA-Public Use
  Company Number: CFNTY-93

PATIENT
  Age: 14 Year
  Sex: Male

DRUGS (1)
  1. CEFDITOREN PIVOXIL 200MG [Suspect]
     Indication: INFLUENZA
     Dosage: P.O.
     Route: 048
     Dates: start: 20070330

REACTIONS (1)
  - ABNORMAL BEHAVIOUR [None]
